FAERS Safety Report 8180855-8 (Version None)
Quarter: 2012Q1

REPORT INFORMATION
  Report Type: 
  Country: None (occurrence: None)
  Receive Date: 20120301
  Receipt Date: 20120301
  Transmission Date: 20120608
  Serious: Yes (Hospitalization)
  Sender: FDA-Public Use
  Company Number: None

PATIENT
  Age: 84 Year
  Sex: Female
  Weight: 50.8029 kg

DRUGS (1)
  1. GRALISE [Suspect]
     Indication: NEURALGIA
     Dosage: START 300MG ONCE A DAY MOUTH END WITH 1800 MG
     Route: 048
     Dates: start: 20120125, end: 20120128

REACTIONS (2)
  - LOSS OF CONSCIOUSNESS [None]
  - HEAD INJURY [None]
